FAERS Safety Report 9174188 (Version 1)
Quarter: 2013Q1

REPORT INFORMATION
  Report Type: Spontaneous
  Country: US (occurrence: None)
  Receive Date: 20130315
  Receipt Date: 20130315
  Transmission Date: 20140127
  Serious: Yes (Other)
  Sender: FDA-Public Use
  Company Number: 2013-03776

PATIENT
  Age: 48 Year
  Sex: Female

DRUGS (18)
  1. LIDOCAINE HYDROCHLORIDE [Suspect]
     Route: 062
  2. LIDOCAINE HYDROCHLORIDE [Suspect]
     Route: 062
  3. METHADONE (METHADONE) [Concomitant]
  4. HYDROMORPHONE (HYDROMORPHONE) [Concomitant]
  5. FUROSEMIDE (FUROSEMIDE) [Concomitant]
  6. ESCITALOPRAM (ESCITALOPRAM) [Concomitant]
  7. PANTOPRAZOLE (PANTOPRAZOLE) [Concomitant]
  8. SUMATRIPTAN (SUMATRIPTAN) [Concomitant]
  9. TEMAZEPAM (TEMAZEPAM) [Concomitant]
  10. MIDAZOLAM (MIDAZOLAM) [Concomitant]
  11. FENTANYL (FENTANYL) [Concomitant]
  12. PROPOFOL (PROPOFOL) [Concomitant]
  13. SUCCINYLCHOLINE (SUXAMETHONIUM CHLORIDE) [Concomitant]
  14. CIPROFLOXACIN (CIPROFLOXACIN) [Concomitant]
  15. METRONIDAZOLE (METRONIDAZOLE) [Concomitant]
  16. VECURONIUM (VECURONIUM) [Concomitant]
  17. DESFLURANE (DESFLURANE) [Concomitant]
  18. KETAMINE (KETAMINE) [Concomitant]

REACTIONS (1)
  - Methaemoglobinaemia [None]
